FAERS Safety Report 6491615-8 (Version None)
Quarter: 2009Q4

REPORT INFORMATION
  Report Type: 
  Country: None (occurrence: None)
  Receive Date: 20091207
  Receipt Date: 20091123
  Transmission Date: 20100525
  Serious: Yes (Death, Life-Threatening, Hospitalization)
  Sender: FDA-Public Use
  Company Number: DE-1171439

PATIENT
  Age: 81 Year
  Sex: Female

DRUGS (6)
  1. FLUORESCITE [Suspect]
     Dosage: 3.5 ML, INTRAVENOUS BOLUS
     Route: 040
  2. BISOPROLOL (BISOPROLOL FUMARATE) [Concomitant]
  3. LISINOPRIL [Concomitant]
  4. ASPIRIN [Concomitant]
  5. RAMIPRIL [Concomitant]
  6. NEBIVOLOL HCL [Concomitant]

REACTIONS (10)
  - ACUTE MYOCARDIAL INFARCTION [None]
  - ASTHENIA [None]
  - BLOOD PRESSURE DECREASED [None]
  - CORONARY ARTERY OCCLUSION [None]
  - CORONARY ARTERY STENOSIS [None]
  - DIZZINESS [None]
  - ELECTROCARDIOGRAM ST SEGMENT ELEVATION [None]
  - FATIGUE [None]
  - HEART RATE DECREASED [None]
  - RESTLESSNESS [None]
